FAERS Safety Report 5769122-7 (Version None)
Quarter: 2008Q2

REPORT INFORMATION
  Report Type: 
  Country: None (occurrence: None)
  Receive Date: 20080612
  Receipt Date: 20080320
  Transmission Date: 20081010
  Serious: No
  Sender: FDA-Public Use
  Company Number: US-ABBOTT-08P-163-0443757-00

PATIENT
  Sex: Male
  Weight: 63.56 kg

DRUGS (3)
  1. HUMIRA [Suspect]
     Indication: PSORIATIC ARTHROPATHY
     Route: 058
     Dates: start: 20060101
  2. HUMIRA [Suspect]
     Indication: PSORIASIS
  3. NORVACE [Concomitant]
     Indication: BLOOD PRESSURE
     Route: 048
     Dates: start: 19970101

REACTIONS (1)
  - ACCIDENTAL EXPOSURE [None]
